FAERS Safety Report 19012233 (Version 1)
Quarter: 2021Q1

REPORT INFORMATION
  Report Type: Spontaneous
  Country: CZ (occurrence: CZ)
  Receive Date: 20210315
  Receipt Date: 20210315
  Transmission Date: 20210420
  Serious: Yes (Other)
  Sender: FDA-Public Use
  Company Number: CZ-JNJFOC-20210313336

PATIENT

DRUGS (4)
  1. VELETRI [Suspect]
     Active Substance: EPOPROSTENOL
     Indication: PULMONARY HYPERTENSION
     Route: 064
  2. TREPROSTINIL. [Suspect]
     Active Substance: TREPROSTINIL
     Route: 064
  3. SILDENAFIL. [Suspect]
     Active Substance: SILDENAFIL
     Route: 064
  4. TREPROSTINIL. [Suspect]
     Active Substance: TREPROSTINIL
     Dosage: (TARGET   40) NG / KG / MIN
     Route: 064

REACTIONS (2)
  - Premature baby [Unknown]
  - Foetal exposure during pregnancy [Unknown]
